FAERS Safety Report 6186004-X (Version None)
Quarter: 2009Q2

REPORT INFORMATION
  Report Type: 
  Country: None (occurrence: None)
  Receive Date: 20090511
  Receipt Date: 20090428
  Transmission Date: 20091009
  Serious: Yes (Other)
  Sender: FDA-Public Use
  Company Number: JP-AVENTIS-200911253JP

PATIENT
  Age: 37 Year
  Sex: Male
  Weight: 64.6 kg

DRUGS (4)
  1. ARAVA [Suspect]
     Indication: RHEUMATOID ARTHRITIS
     Route: 048
     Dates: start: 20080707, end: 20080811
  2. METOLATE [Concomitant]
     Indication: RHEUMATOID ARTHRITIS
     Dosage: DOSE: 8 MG/WEEK
     Route: 048
  3. METOLATE [Concomitant]
     Dosage: DOSE: 8 MG/WEEK
     Route: 048
  4. AZULFIDINE EN-TABS [Concomitant]
     Indication: RHEUMATOID ARTHRITIS
     Route: 048
     Dates: end: 20080706

REACTIONS (4)
  - ALANINE AMINOTRANSFERASE INCREASED [None]
  - ASPARTATE AMINOTRANSFERASE INCREASED [None]
  - BLOOD LACTATE DEHYDROGENASE INCREASED [None]
  - GAMMA-GLUTAMYLTRANSFERASE INCREASED [None]
